FAERS Safety Report 21263047 (Version 1)
Quarter: 2022Q3

REPORT INFORMATION
  Report Type: Spontaneous
  Country: US (occurrence: None)
  Receive Date: 20220826
  Receipt Date: 20220826
  Transmission Date: 20221026
  Serious: Yes (unspecified)
  Sender: FDA-Public Use
  Company Number: None

PATIENT
  Age: 45 Year
  Sex: Male
  Weight: 88.5 kg

DRUGS (3)
  1. TENECTEPLASE [Suspect]
     Active Substance: TENECTEPLASE
     Indication: Ischaemic stroke
     Dosage: FREQUENCY : ONCE;?
     Route: 040
     Dates: start: 20220823, end: 20220823
  2. Aspirin 324 mg [Concomitant]
     Dates: start: 20220823, end: 20220823
  3. CLOPIDOGREL [Concomitant]
     Active Substance: CLOPIDOGREL BISULFATE
     Dates: start: 20220823

REACTIONS (2)
  - Lip oedema [None]
  - Tongue oedema [None]

NARRATIVE: CASE EVENT DATE: 20220823
